FAERS Safety Report 23791597 (Version 1)
Quarter: 2024Q2

REPORT INFORMATION
  Report Type: Spontaneous
  Country: US (occurrence: US)
  Receive Date: 20240429
  Receipt Date: 20240429
  Transmission Date: 20240716
  Serious: No
  Sender: FDA-Public Use
  Company Number: US-KVK-TECH, INC-20230700108

PATIENT

DRUGS (1)
  1. PHENTERMINE HYDROCHLORIDE [Suspect]
     Active Substance: PHENTERMINE HYDROCHLORIDE
     Indication: Weight decreased
     Dosage: 37.5 MILLIGRAM, QD (ONE CAPSULE A DAY)
     Route: 048
     Dates: start: 202302

REACTIONS (1)
  - Intentional dose omission [Unknown]

NARRATIVE: CASE EVENT DATE: 20230101
